FAERS Safety Report 10103033 (Version 1)
Quarter: 2014Q2

REPORT INFORMATION
  Report Type: Spontaneous
  Country: PR (occurrence: PR)
  Receive Date: 20140424
  Receipt Date: 20140424
  Transmission Date: 20141212
  Serious: No
  Sender: FDA-Public Use
  Company Number: PR-BRISTOL-MYERS SQUIBB COMPANY-20086799

PATIENT
  Age: 89 Year
  Sex: Male
  Weight: 58.96 kg

DRUGS (1)
  1. ELIQUIS [Suspect]
     Dosage: DOSE REDUCED TO 5MG TWICE A DAY

REACTIONS (2)
  - Blood urine present [Not Recovered/Not Resolved]
  - Drug prescribing error [Unknown]
